FAERS Safety Report 8738648 (Version 3)
Quarter: 2012Q4

REPORT INFORMATION
  Report Type: 
  Country: JP (occurrence: JP)
  Receive Date: 20120823
  Receipt Date: 20120927
  Transmission Date: 20130627
  Serious: Yes (Death, Life-Threatening)
  Sender: FDA-Public Use
  Company Number: PHHY2012JP072512

PATIENT
  Age: 78 Year
  Sex: Female
  Weight: 47 kg

DRUGS (4)
  1. FAMVIR [Suspect]
     Indication: HERPES ZOSTER
     Dosage: 500 mg, TID
     Route: 048
     Dates: start: 20120704, end: 20120708
  2. LOBU [Suspect]
     Indication: HERPES ZOSTER
     Dosage: 60 mg, TID
     Route: 048
     Dates: start: 20120704, end: 20120812
  3. LYRICA [Suspect]
     Indication: HERPES ZOSTER
     Dosage: 75 mg, per day
     Route: 048
     Dates: start: 20120704, end: 20120812
  4. CEFCAPENE PIVOXIL HYDROCHLORIDE [Concomitant]

REACTIONS (6)
  - Hepatitis acute [Fatal]
  - Hepatitis fulminant [Not Recovered/Not Resolved]
  - Encephalopathy [Not Recovered/Not Resolved]
  - Decreased appetite [Not Recovered/Not Resolved]
  - Oedema [Not Recovered/Not Resolved]
  - Somnolence [Not Recovered/Not Resolved]
